FAERS Safety Report 16148159 (Version 1)
Quarter: 2019Q2

REPORT INFORMATION
  Report Type: Spontaneous
  Country: US (occurrence: US)
  Receive Date: 20190402
  Receipt Date: 20190402
  Transmission Date: 20190711
  Serious: No
  Sender: FDA-Public Use
  Company Number: US-BAYER-2019-061610

PATIENT

DRUGS (2)
  1. NEXAVAR [Suspect]
     Active Substance: SORAFENIB
     Indication: GASTROINTESTINAL STROMAL TUMOUR
     Dosage: UNK
     Dates: start: 20190319
  2. SUTENT [Suspect]
     Active Substance: SUNITINIB MALATE
     Indication: BENIGN SOFT TISSUE NEOPLASM
     Dosage: 25 MG, QD
     Route: 048
     Dates: start: 201709

REACTIONS (3)
  - Product use in unapproved indication [None]
  - Off label use [None]
  - Palmar-plantar erythrodysaesthesia syndrome [None]
